FAERS Safety Report 6155955-4 (Version None)
Quarter: 2009Q2

REPORT INFORMATION
  Report Type: 
  Country: None (occurrence: None)
  Receive Date: 20090415
  Receipt Date: 20090406
  Transmission Date: 20091009
  Serious: Yes (Hospitalization)
  Sender: FDA-Public Use
  Company Number: PL-WYE-H08873409

PATIENT
  Sex: Male

DRUGS (2)
  1. CORDARONE [Suspect]
     Indication: TACHYCARDIA
     Route: 042
     Dates: start: 20090313, end: 20090317
  2. CORDARONE [Suspect]
     Indication: ATRIAL FIBRILLATION

REACTIONS (1)
  - INJECTION SITE INFLAMMATION [None]
